FAERS Safety Report 4883525-4 (Version None)
Quarter: 2006Q1

REPORT INFORMATION
  Report Type: 
  Country: None (occurrence: None)
  Receive Date: 20060118
  Receipt Date: 20050801
  Transmission Date: 20060701
  Serious: Yes (Hospitalization)
  Sender: FDA-Public Use
  Company Number: US-MERCK-0508USA00799

PATIENT
  Age: 65 Year
  Sex: Female
  Weight: 73 kg

DRUGS (4)
  1. VIOXX [Suspect]
     Indication: PAIN
     Route: 048
     Dates: start: 19990101, end: 20000701
  2. LIPITOR [Concomitant]
     Route: 065
  3. LASIX [Concomitant]
     Route: 065
  4. ASPIRIN [Concomitant]
     Route: 065

REACTIONS (6)
  - ANXIETY [None]
  - CARDIOMEGALY [None]
  - CORONARY ARTERY DISEASE [None]
  - MYOCARDIAL INFARCTION [None]
  - PANIC ATTACK [None]
  - THROMBOSIS [None]
